FAERS Safety Report 8018763-5 (Version None)
Quarter: 2012Q1

REPORT INFORMATION
  Report Type: 
  Country: None (occurrence: None)
  Receive Date: 20120103
  Receipt Date: 20111229
  Transmission Date: 20120608
  Serious: Yes (Death, Hospitalization)
  Sender: FDA-Public Use
  Company Number: DE-ABBOTT-11P-062-0855918-00

PATIENT
  Sex: Female
  Weight: 80 kg

DRUGS (7)
  1. ALENDRON ACID [Concomitant]
     Indication: OSTEOPOROSIS
  2. PANTOPRAZOLE SODIUM [Concomitant]
     Indication: PRODUCT USED FOR UNKNOWN INDICATION
     Dates: end: 20110901
  3. PREDNISOLONE [Suspect]
     Indication: RHEUMATOID ARTHRITIS
     Dates: end: 20110901
  4. HUMIRA [Suspect]
     Indication: RHEUMATOID ARTHRITIS
     Route: 058
     Dates: start: 20110603, end: 20110907
  5. CALCILAC [Concomitant]
     Indication: PRODUCT USED FOR UNKNOWN INDICATION
     Route: 048
  6. LEVOTHYROXINE SODIUM [Concomitant]
     Indication: PRODUCT USED FOR UNKNOWN INDICATION
     Dosage: 50 UG OD
     Route: 048
  7. PREDNISOLONE [Suspect]
     Dates: start: 20110901

REACTIONS (6)
  - JAUNDICE [None]
  - OESOPHAGEAL PAPILLOMA [None]
  - DIVERTICULUM INTESTINAL [None]
  - HYPOKALAEMIA [None]
  - CIRRHOSIS ALCOHOLIC [None]
  - CYTOMEGALOVIRUS INFECTION [None]
